FAERS Safety Report 10335470 (Version 1)
Quarter: 2014Q3

REPORT INFORMATION
  Report Type: Spontaneous
  Country: US (occurrence: US)
  Receive Date: 20140723
  Receipt Date: 20140723
  Transmission Date: 20150326
  Serious: No
  Sender: FDA-Public Use
  Company Number: US-ASTRAZENECA-2014SE51022

PATIENT
  Age: 78 Year
  Sex: Male
  Weight: 76.7 kg

DRUGS (5)
  1. CRESTOR [Suspect]
     Active Substance: ROSUVASTATIN CALCIUM
     Indication: BLOOD CHOLESTEROL INCREASED
     Dosage: CUT THE 10 MG TABLET IN HALF AND TAKE 5 MG EVERY OTHER DAY
     Route: 048
     Dates: start: 2013
  2. NORTRIPTILYNE [Concomitant]
     Indication: RESTLESS LEGS SYNDROME
     Dosage: 25 MG
  3. OMEPRAZOLE OTC [Suspect]
     Active Substance: OMEPRAZOLE
     Indication: DYSPEPSIA
     Route: 048
  4. TAMSULOSIN [Concomitant]
     Active Substance: TAMSULOSIN
     Indication: PROSTATOMEGALY
     Dosage: 0.4 MG
  5. MELOXICAM. [Concomitant]
     Active Substance: MELOXICAM
     Indication: ARTHRITIS
     Dosage: 50 MG

REACTIONS (5)
  - Headache [Unknown]
  - Hot flush [Recovered/Resolved]
  - Intentional product misuse [Unknown]
  - Feeling hot [Unknown]
  - Malaise [Unknown]

NARRATIVE: CASE EVENT DATE: 201405
